FAERS Safety Report 10101729 (Version 3)
Quarter: 2014Q2

REPORT INFORMATION
  Report Type: Spontaneous
  Country: US (occurrence: US)
  Receive Date: 20140424
  Receipt Date: 20140515
  Transmission Date: 20141212
  Serious: Yes (Other)
  Sender: FDA-Public Use
  Company Number: US-PFIZER INC-2014113827

PATIENT
  Age: 51 Year
  Sex: Female
  Weight: 58.96 kg

DRUGS (1)
  1. NEURONTIN [Suspect]
     Indication: NEURALGIA
     Dosage: 1200 MG, 3X/DAY
     Route: 048
     Dates: start: 200703

REACTIONS (1)
  - Spinal disorder [Unknown]
